FAERS Safety Report 8258275-7 (Version None)
Quarter: 2012Q2

REPORT INFORMATION
  Report Type: 
  Country: None (occurrence: None)
  Receive Date: 20120403
  Receipt Date: 20120403
  Transmission Date: 20120825
  Serious: Yes (Other)
  Sender: FDA-Public Use
  Company Number: None

PATIENT
  Sex: Female
  Weight: 52.3 kg

DRUGS (2)
  1. MULTAQ [Suspect]
     Indication: ATRIAL FIBRILLATION
     Dosage: 400 MG BID ORAL
     Route: 048
     Dates: start: 20111230
  2. MULTAQ [Suspect]
     Indication: ATRIAL FIBRILLATION
     Dosage: 400 MG BID ORAL
     Route: 048
     Dates: start: 20111110

REACTIONS (5)
  - HEPATOCELLULAR INJURY [None]
  - DECREASED APPETITE [None]
  - WEIGHT DECREASED [None]
  - FATIGUE [None]
  - HEPATIC ENZYME INCREASED [None]
